FAERS Safety Report 5736035-6 (Version None)
Quarter: 2008Q2

REPORT INFORMATION
  Report Type: 
  Country: None (occurrence: None)
  Receive Date: 20080513
  Receipt Date: 20080513
  Transmission Date: 20081010
  Serious: Yes (Death)
  Sender: FDA-Public Use
  Company Number: None

PATIENT
  Age: 79 Year
  Sex: Female
  Weight: 55.3388 kg

DRUGS (1)
  1. HEPARIN [Suspect]
     Indication: HEART VALVE REPLACEMENT
     Dosage: 10,000 1 IV DRIP
     Route: 041
     Dates: start: 20070809, end: 20070809

REACTIONS (2)
  - DRUG HYPERSENSITIVITY [None]
  - MULTI-ORGAN FAILURE [None]
